FAERS Safety Report 8554785-3 (Version None)
Quarter: 2012Q3

REPORT INFORMATION
  Report Type: 
  Country: None (occurrence: None)
  Receive Date: 20120731
  Receipt Date: 20120719
  Transmission Date: 20120928
  Serious: Yes (Hospitalization)
  Sender: FDA-Public Use
  Company Number: US-ACTELION-A-NJ2010-42344

PATIENT
  Age: 61 Year
  Sex: Female

DRUGS (4)
  1. TRACLEER [Suspect]
     Indication: PULMONARY ARTERIAL HYPERTENSION
     Dosage: UNK
     Route: 048
  2. TYVASO [Concomitant]
  3. REVATIO [Concomitant]
  4. FUROSEMIDE W/SPIRONOLACTONE [Concomitant]

REACTIONS (10)
  - SKIN ULCER [None]
  - FLUID RETENTION [None]
  - COUGH [None]
  - HEART RATE INCREASED [None]
  - RIGHT VENTRICULAR FAILURE [None]
  - PERICARDIAL EFFUSION [None]
  - FATIGUE [None]
  - PLEURAL EFFUSION [None]
  - OEDEMA PERIPHERAL [None]
  - OEDEMA [None]
